FAERS Safety Report 9177870 (Version 4)
Quarter: 2013Q2

REPORT INFORMATION
  Report Type: Spontaneous
  Country: JP (occurrence: JP)
  Receive Date: 20130321
  Receipt Date: 20130522
  Transmission Date: 20140414
  Serious: Yes (Hospitalization)
  Sender: FDA-Public Use
  Company Number: JP-ALLERGAN-1303990US

PATIENT
  Age: 72 Year
  Sex: Male

DRUGS (4)
  1. BOTOX [Suspect]
     Indication: MUSCLE SPASMS
     Dosage: 350 UNITS, SINGLE
     Route: 030
     Dates: start: 20130313, end: 20130313
  2. OPALMON [Concomitant]
     Indication: PRODUCT USED FOR UNKNOWN INDICATION
     Route: 048
  3. PLAVIX [Concomitant]
     Indication: PRODUCT USED FOR UNKNOWN INDICATION
     Route: 048
  4. LYRICA [Concomitant]
     Indication: PRODUCT USED FOR UNKNOWN INDICATION
     Route: 048

REACTIONS (9)
  - Cerebral infarction [Recovered/Resolved]
  - Embolic stroke [Recovered/Resolved]
  - Malaise [Recovered/Resolved]
  - Sneezing [Unknown]
  - Nasopharyngitis [Unknown]
  - Dizziness [Recovered/Resolved]
  - Gait disturbance [Recovered/Resolved]
  - Muscular weakness [Unknown]
  - Off label use [Unknown]
